FAERS Safety Report 11749279 (Version 1)
Quarter: 2015Q4

REPORT INFORMATION
  Report Type: Spontaneous
  Country: US (occurrence: None)
  Receive Date: 20151116
  Receipt Date: 20151116
  Transmission Date: 20160304
  Serious: No
  Sender: FDA-Public Use
  Company Number: None

PATIENT
  Age: 65 Year
  Sex: Male
  Weight: 81.8 kg

DRUGS (1)
  1. INSULIN [Suspect]
     Active Substance: INSULIN NOS
     Indication: DIABETES MELLITUS
     Dosage: ML
     Dates: start: 20150522, end: 20151019

REACTIONS (5)
  - Headache [None]
  - Dyspnoea [None]
  - Neck pain [None]
  - Local swelling [None]
  - Therapy cessation [None]

NARRATIVE: CASE EVENT DATE: 20151019
